FAERS Safety Report 8505342-6 (Version None)
Quarter: 2012Q3

REPORT INFORMATION
  Report Type: 
  Country: None (occurrence: None)
  Receive Date: 20120712
  Receipt Date: 20120711
  Transmission Date: 20120928
  Serious: Yes (Hospitalization)
  Sender: FDA-Public Use
  Company Number: DK-UCBSA-044428

PATIENT
  Age: 63 Year
  Sex: Male
  Weight: 92.7 kg

DRUGS (10)
  1. CIMZIA [Suspect]
     Indication: RHEUMATOID ARTHRITIS
     Route: 058
     Dates: end: 20111026
  2. FOLIC ACID [Concomitant]
     Indication: PROPHYLAXIS
     Dosage: AS SUFFICIENT QUANTITY
     Route: 048
     Dates: start: 20080327
  3. PREDNISOLONE [Concomitant]
     Indication: RHEUMATOID ARTHRITIS
     Route: 048
     Dates: start: 20110302, end: 20110101
  4. CALCIUM [Concomitant]
     Indication: PROPHYLAXIS
     Route: 048
     Dates: start: 20080327
  5. D-VITAMIN [Concomitant]
     Indication: PROPHYLAXIS
     Route: 048
     Dates: start: 20080327
  6. PREDNISOLONE [Concomitant]
     Route: 048
     Dates: start: 20111104
  7. ACETAMINOPHEN [Concomitant]
     Indication: RHEUMATOID ARTHRITIS
     Dosage: AS NESSECARY, AS USED: 1 G
     Route: 048
     Dates: start: 20050101
  8. GADOTERIN ACID [Concomitant]
     Indication: RHEUMATOID ARTHRITIS
     Dates: start: 20111004, end: 20111004
  9. METHOTREXATE [Concomitant]
     Indication: RHEUMATOID ARTHRITIS
     Dosage: FREQUENCY: QS
     Route: 048
     Dates: start: 20110223
  10. METHOTREXATE [Concomitant]
     Route: 048
     Dates: start: 20080327

REACTIONS (1)
  - EMBOLISM [None]
